FAERS Safety Report 6717011-3 (Version None)
Quarter: 2010Q2

REPORT INFORMATION
  Report Type: 
  Country: None (occurrence: None)
  Receive Date: 20100510
  Receipt Date: 20100510
  Transmission Date: 20101027
  Serious: Yes (Other)
  Sender: FDA-Public Use
  Company Number: None

PATIENT
  Age: 4 Year
  Sex: Female
  Weight: 14.9687 kg

DRUGS (1)
  1. ZYRTEC [Suspect]
     Indication: MULTIPLE ALLERGIES
     Dosage: 1/2 TSP TWICE DAILY PO
     Route: 048
     Dates: start: 20100501, end: 20100503

REACTIONS (6)
  - EYE INFLAMMATION [None]
  - HYPERSENSITIVITY [None]
  - NASAL INFLAMMATION [None]
  - PRODUCT QUALITY ISSUE [None]
  - PRURITUS [None]
  - SCRATCH [None]
